FAERS Safety Report 4472318-8 (Version None)
Quarter: 2004Q4

REPORT INFORMATION
  Report Type: 
  Country: None (occurrence: None)
  Receive Date: 20041007
  Receipt Date: 20040927
  Transmission Date: 20050328
  Serious: Yes (Hospitalization)
  Sender: FDA-Public Use
  Company Number: 702130

PATIENT
  Age: 56 Year
  Sex: Male
  Weight: 65.7716 kg

DRUGS (4)
  1. AMEVIVE [Suspect]
     Dosage: 15 MG QW IM
     Route: 030
     Dates: start: 20031006, end: 20040112
  2. AMEVIVE [Suspect]
     Dosage: 15 MG QW IM
     Route: 030
     Dates: start: 20040308, end: 20040330
  3. AMEVIVE [Suspect]
     Dosage: 15 MG QW IM
     Route: 030
     Dates: start: 20040520
  4. PRAVACHOL [Concomitant]

REACTIONS (10)
  - ARTHRITIS INFECTIVE [None]
  - BLOOD CHOLESTEROL INCREASED [None]
  - BURSITIS [None]
  - DRUG INEFFECTIVE [None]
  - HERPES ZOSTER [None]
  - LIVER DISORDER [None]
  - LIVER FUNCTION TEST ABNORMAL [None]
  - MYCOBACTERIUM AVIUM COMPLEX INFECTION [None]
  - POSTOPERATIVE INFECTION [None]
  - WOUND DEHISCENCE [None]
